FAERS Safety Report 11969168 (Version 1)
Quarter: 2016Q1

REPORT INFORMATION
  Report Type: Spontaneous
  Country: US (occurrence: US)
  Receive Date: 20160128
  Receipt Date: 20160128
  Transmission Date: 20160526
  Serious: Yes (Death)
  Sender: FDA-Public Use
  Company Number: US-TEVA-629591USA

PATIENT
  Age: 69 Year
  Sex: Male

DRUGS (1)
  1. TRIMETHOPRIM/SULFAMETHOXAZOLE [Suspect]
     Active Substance: SULFAMETHOXAZOLE\TRIMETHOPRIM
     Indication: PROSTATITIS
     Route: 065

REACTIONS (3)
  - Acute hepatic failure [Fatal]
  - Autoimmune haemolytic anaemia [Fatal]
  - Enterobacter bacteraemia [Fatal]
